FAERS Safety Report 7799611-5 (Version None)
Quarter: 2011Q4

REPORT INFORMATION
  Report Type: 
  Country: None (occurrence: None)
  Receive Date: 20111006
  Receipt Date: 20110926
  Transmission Date: 20120403
  Serious: Yes (Other)
  Sender: FDA-Public Use
  Company Number: US-BAYER-2011-019389

PATIENT
  Age: 30 Year
  Sex: Female
  Weight: 56.689 kg

DRUGS (6)
  1. LORAZEPAM [Concomitant]
     Dosage: 0.5 MG, QD
     Route: 048
     Dates: start: 20090201
  2. YAZ [Suspect]
     Dosage: UNK
     Dates: start: 20080701, end: 20081201
  3. AEROBID [Concomitant]
     Dosage: 1 PUFF(S), QD
     Dates: start: 20090201
  4. ALBUTEROL [Concomitant]
     Dosage: 2 PUFF(S), TID
     Route: 055
     Dates: start: 20090201
  5. YAZ [Suspect]
     Dosage: UNK
     Dates: start: 20090215, end: 20090217
  6. YAZ [Suspect]
     Indication: CONTRACEPTION
     Dosage: UNK
     Dates: start: 20060401, end: 20080201

REACTIONS (6)
  - DEEP VEIN THROMBOSIS [None]
  - OEDEMA PERIPHERAL [None]
  - PAIN [None]
  - EMOTIONAL DISTRESS [None]
  - PAIN IN EXTREMITY [None]
  - ANXIETY [None]
